FAERS Safety Report 8069382-6 (Version None)
Quarter: 2011Q4

REPORT INFORMATION
  Report Type: 
  Country: None (occurrence: None)
  Receive Date: 20111221
  Receipt Date: 20110112
  Transmission Date: 20120403
  Serious: Yes (Other)
  Sender: FDA-Public Use
  Company Number: PHHY2011US03471

PATIENT
  Age: 3 Year
  Sex: Male

DRUGS (1)
  1. EXJADE [Suspect]
     Indication: THALASSAEMIA BETA
     Dosage: 375 MG, DAILY, ORAL
     Route: 048
     Dates: start: 20100729, end: 20101224

REACTIONS (1)
  - HEPATIC ENZYME INCREASED [None]
